FAERS Safety Report 6292357-4 (Version None)
Quarter: 2009Q3

REPORT INFORMATION
  Report Type: 
  Country: None (occurrence: None)
  Receive Date: 20090731
  Receipt Date: 20070724
  Transmission Date: 20100115
  Serious: Yes (Hospitalization, Other)
  Sender: FDA-Public Use
  Company Number: US-ASTRAZENECA-2006UW26659

PATIENT
  Age: 11300 Day
  Sex: Male
  Weight: 147.4 kg

DRUGS (26)
  1. SEROQUEL [Suspect]
     Indication: BIPOLAR DISORDER
     Route: 048
     Dates: start: 20030101
  2. SEROQUEL [Suspect]
     Indication: SLEEP DISORDER
     Route: 048
     Dates: start: 20030101
  3. SEROQUEL [Suspect]
     Indication: ANXIETY
     Route: 048
     Dates: start: 20030101
  4. SEROQUEL [Suspect]
     Dosage: 25 MG - 400 MG DAILY
     Route: 048
     Dates: start: 20040919
  5. SEROQUEL [Suspect]
     Dosage: 25 MG - 400 MG DAILY
     Route: 048
     Dates: start: 20040919
  6. SEROQUEL [Suspect]
     Dosage: 25 MG - 400 MG DAILY
     Route: 048
     Dates: start: 20040919
  7. NITROGLYCERIN [Concomitant]
     Indication: CHEST PAIN
     Dosage: AS REQUIRED
     Route: 060
  8. GLYBURIDE [Concomitant]
     Indication: BLOOD GLUCOSE
  9. PERCOCET [Concomitant]
     Indication: BREAKTHROUGH PAIN
     Dosage: ONE TO TWO TABLETS EVERY SIX HOURS
  10. PERI-COLACE [Concomitant]
     Indication: CONSTIPATION
     Dosage: TWO TABLETS DAILY AS NEEDED
  11. PROZAC [Concomitant]
     Dosage: STRENGTH 20 MG, 80 MG. DOSE 20 MG - 160 MG
     Route: 048
  12. TRAZODONE HCL [Concomitant]
     Route: 048
  13. IBUPROFEN [Concomitant]
     Route: 048
  14. BUSPAR [Concomitant]
  15. LOPRESSOR [Concomitant]
     Dosage: DOSE 50 MG - 100 MG
  16. NEURONTIN [Concomitant]
  17. BEXTRA [Concomitant]
     Route: 048
  18. ARTANE [Concomitant]
     Dosage: HALF TABLET TWO TIMES A DAY AT NIGHT
     Route: 048
  19. TEMAZEPAM [Concomitant]
     Route: 048
  20. FLUCONAZOLE [Concomitant]
     Route: 048
  21. RISPERIDONE [Concomitant]
     Route: 048
  22. ZOLOFT [Concomitant]
  23. ACCUPRIL [Concomitant]
     Dosage: 20 - 40 MG DAILY
  24. GEMFIBROZIL [Concomitant]
  25. LANTUS [Concomitant]
     Dosage: 150 UNITS AT NIGHT
  26. ZYPREXA [Concomitant]

REACTIONS (4)
  - DIABETES MELLITUS [None]
  - DIABETES MELLITUS INADEQUATE CONTROL [None]
  - INGROWN HAIR [None]
  - NECROTISING FASCIITIS [None]
